FAERS Safety Report 23618191 (Version 3)
Quarter: 2024Q4

REPORT INFORMATION
  Report Type: Spontaneous
  Country: US (occurrence: US)
  Receive Date: 20240311
  Receipt Date: 20241204
  Transmission Date: 20250115
  Serious: Yes (Other)
  Sender: PFIZER
  Company Number: US-PFIZER INC-202400055022

PATIENT
  Age: 77 Year
  Sex: Female
  Weight: 68.027 kg

DRUGS (3)
  1. PREMARIN [Suspect]
     Active Substance: ESTROGENS, CONJUGATED
     Indication: Vulvovaginal dryness
     Dosage: 0.5 G VAGINALLY THREE TIMES A WEEK
     Route: 067
  2. PREMARIN [Suspect]
     Active Substance: ESTROGENS, CONJUGATED
     Indication: Vulvovaginal pain
     Dosage: 0.05, 3X/WEEK
     Route: 067
     Dates: start: 2020
  3. PREMARIN [Suspect]
     Active Substance: ESTROGENS, CONJUGATED
     Indication: Genitourinary syndrome of menopause

REACTIONS (5)
  - Knee arthroplasty [Recovering/Resolving]
  - Off label use [Unknown]
  - Dry throat [Not Recovered/Not Resolved]
  - Hypersensitivity [Unknown]
  - Cough [Unknown]
